FAERS Safety Report 5907120-0 (Version None)
Quarter: 2008Q4

REPORT INFORMATION
  Report Type: 
  Country: None (occurrence: None)
  Receive Date: 20081003
  Receipt Date: 20080930
  Transmission Date: 20090506
  Serious: Yes (Hospitalization)
  Sender: FDA-Public Use
  Company Number: NO-ASTRAZENECA-2008SE04570

PATIENT
  Age: 85 Year
  Sex: Male

DRUGS (1)
  1. SELO-ZOK [Suspect]
     Route: 048
     Dates: start: 20080929, end: 20080929

REACTIONS (2)
  - ACCIDENTAL OVERDOSE [None]
  - HEART RATE DECREASED [None]
